FAERS Safety Report 5631934-8 (Version None)
Quarter: 2008Q1

REPORT INFORMATION
  Report Type: 
  Country: None (occurrence: None)
  Receive Date: 20080212
  Receipt Date: 20080128
  Transmission Date: 20080703
  Serious: Yes (Hospitalization)
  Sender: FDA-Public Use
  Company Number: 2007002528

PATIENT
  Age: 80 Year
  Sex: Male

DRUGS (2)
  1. TARCEVA [Suspect]
     Indication: NON-SMALL CELL LUNG CANCER
     Dosage: 150 MG, QD, ORAL
     Route: 048
     Dates: start: 20070715
  2. PACLITAXEL [Concomitant]

REACTIONS (10)
  - COMA [None]
  - COUGH [None]
  - DYSPNOEA [None]
  - HAEMOPTYSIS [None]
  - HYPOAESTHESIA [None]
  - MOUTH ULCERATION [None]
  - ODYNOPHAGIA [None]
  - ORAL PAIN [None]
  - PRURITUS [None]
  - RASH PAPULAR [None]
